FAERS Safety Report 20516817 (Version 2)
Quarter: 2022Q3

REPORT INFORMATION
  Report Type: Spontaneous
  Country: JP (occurrence: JP)
  Receive Date: 20220225
  Receipt Date: 20220708
  Transmission Date: 20221026
  Serious: Yes (Other)
  Sender: FDA-Public Use
  Company Number: JP-ONO-2022JP001411

PATIENT

DRUGS (1)
  1. OPDIVO [Suspect]
     Active Substance: NIVOLUMAB
     Indication: Gastric cancer
     Dosage: 240 MILLIGRAM
     Route: 041
     Dates: start: 20191001

REACTIONS (1)
  - Carpal tunnel syndrome [Recovered/Resolved]

NARRATIVE: CASE EVENT DATE: 20220117
